FAERS Safety Report 8257518-3 (Version None)
Quarter: 2012Q1

REPORT INFORMATION
  Report Type: 
  Country: None (occurrence: None)
  Receive Date: 20120330
  Receipt Date: 20120330
  Transmission Date: 20120608
  Serious: No
  Sender: FDA-Public Use
  Company Number: None

PATIENT
  Age: 71 Year
  Sex: Female
  Weight: 66.6788 kg

DRUGS (1)
  1. LEVOFLOXACIN [Suspect]
     Indication: SINUSITIS
     Dosage: 500MG 1 DAILY BY MOUTH
     Route: 048
     Dates: start: 20120227, end: 20120307

REACTIONS (1)
  - PAIN IN EXTREMITY [None]
